FAERS Safety Report 7793495-7 (Version None)
Quarter: 2011Q4

REPORT INFORMATION
  Report Type: 
  Country: None (occurrence: None)
  Receive Date: 20111003
  Receipt Date: 20110104
  Transmission Date: 20120403
  Serious: No
  Sender: FDA-Public Use
  Company Number: US-BAYER-2011-001710

PATIENT
  Sex: Female

DRUGS (2)
  1. VITAMIN D [Concomitant]
  2. CIPROFLOXACIN [Suspect]
     Route: 048

REACTIONS (1)
  - RASH [None]
